FAERS Safety Report 23251019 (Version 5)
Quarter: 2024Q2

REPORT INFORMATION
  Report Type: Spontaneous
  Country: US (occurrence: US)
  Receive Date: 20231201
  Receipt Date: 20240627
  Transmission Date: 20240716
  Serious: No
  Sender: FDA-Public Use
  Company Number: US-PFIZER INC-PV202300191972

PATIENT
  Age: 80 Year
  Sex: Female
  Weight: 86.168 kg

DRUGS (1)
  1. PREMARIN [Suspect]
     Active Substance: ESTROGENS, CONJUGATED
     Dosage: UNK

REACTIONS (3)
  - Fungal infection [Unknown]
  - Product prescribing error [Unknown]
  - Expired product administered [Unknown]
